FAERS Safety Report 6647502-5 (Version None)
Quarter: 2010Q1

REPORT INFORMATION
  Report Type: 
  Country: None (occurrence: None)
  Receive Date: 20100323
  Receipt Date: 20100323
  Transmission Date: 20100710
  Serious: Yes (Hospitalization)
  Sender: FDA-Public Use
  Company Number: None

PATIENT
  Age: 61 Year
  Sex: Male

DRUGS (1)
  1. OXYCODONE AND ACETAMINOPHEN [Suspect]
     Indication: PAIN
     Dosage: 1-2 PRN PO
     Route: 048
     Dates: start: 20100211

REACTIONS (3)
  - ACTIVITIES OF DAILY LIVING IMPAIRED [None]
  - OVERDOSE [None]
  - SEDATION [None]
